FAERS Safety Report 10427981 (Version 1)
Quarter: 2014Q3

REPORT INFORMATION
  Report Type: Spontaneous
  Country: US (occurrence: None)
  Receive Date: 20140902
  Receipt Date: 20140902
  Transmission Date: 20150326
  Serious: Yes (Life-Threatening, Hospitalization)
  Sender: FDA-Public Use
  Company Number: None

PATIENT
  Age: 63 Year
  Sex: Female
  Weight: 113 kg

DRUGS (1)
  1. COUMADIN [Suspect]
     Active Substance: WARFARIN SODIUM
     Indication: ATRIAL FIBRILLATION
     Dosage: 2.5 MG ( 1 TAB) DAILY ORAL
     Route: 048
     Dates: start: 20130522, end: 20140809

REACTIONS (3)
  - International normalised ratio decreased [None]
  - Cerebral haemorrhage [None]
  - Subdural haemorrhage [None]

NARRATIVE: CASE EVENT DATE: 20140809
